FAERS Safety Report 6698746-8 (Version None)
Quarter: 2010Q2

REPORT INFORMATION
  Report Type: 
  Country: None (occurrence: None)
  Receive Date: 20100427
  Receipt Date: 20100415
  Transmission Date: 20101027
  Serious: Yes (Other)
  Sender: FDA-Public Use
  Company Number: PHHY2010JP23547

PATIENT
  Sex: Male
  Weight: 61 kg

DRUGS (5)
  1. DIOVAN [Suspect]
     Indication: HYPERTENSION
     Dosage: 80 MG, QD
     Route: 048
     Dates: start: 20071112
  2. DIOVAN [Suspect]
     Dosage: 40 MG, QD
     Dates: start: 20080913, end: 20081212
  3. DIOVAN [Suspect]
     Dosage: 80 MG, QD
     Dates: start: 20081213
  4. FLUVASTATIN [Concomitant]
     Dosage: 20 MG
     Route: 048
     Dates: start: 20071112
  5. PLETAL [Concomitant]
     Dosage: 200 MG
     Route: 048
     Dates: start: 20090523, end: 20091015

REACTIONS (3)
  - BLOOD PRESSURE DIASTOLIC DECREASED [None]
  - CARDIAC PACEMAKER INSERTION [None]
  - HEART RATE DECREASED [None]
